FAERS Safety Report 10048681 (Version 1)
Quarter: 2014Q1

REPORT INFORMATION
  Report Type: Spontaneous
  Country: FR (occurrence: FR)
  Receive Date: 20140331
  Receipt Date: 20140331
  Transmission Date: 20141002
  Serious: Yes (Death, Hospitalization)
  Sender: FDA-Public Use
  Company Number: FR-BRISTOL-MYERS SQUIBB COMPANY-20565420

PATIENT
  Age: 82 Year
  Sex: Female

DRUGS (8)
  1. COUMADINE [Suspect]
     Dosage: 1DF=0.25-UNITS NOS?INT UNK-27JAN14?RESTARTED
     Route: 048
  2. CO-TRIMOXAZOL [Suspect]
     Indication: URINARY TRACT INFECTION
     Dosage: COTRIMOXAZOLE RATIOPHARM
     Route: 048
     Dates: start: 20140110, end: 20140115
  3. CORDARONE [Concomitant]
  4. INEXIUM [Concomitant]
  5. FENOFIBRATE [Concomitant]
  6. ALPRAZOLAM [Concomitant]
  7. DIFFU-K [Concomitant]
  8. LANTUS [Concomitant]

REACTIONS (2)
  - Renal failure acute [Fatal]
  - Haematuria [Recovered/Resolved]
